FAERS Safety Report 12235088 (Version 6)
Quarter: 2017Q1

REPORT INFORMATION
  Report Type: Spontaneous
  Country: US (occurrence: US)
  Receive Date: 20160404
  Receipt Date: 20170124
  Transmission Date: 20170428
  Serious: Yes (Hospitalization)
  Sender: FDA-Public Use
  Company Number: US-ACTELION-A-US2016-133672

PATIENT
  Age: 53 Year
  Sex: Female

DRUGS (2)
  1. VELETRI [Suspect]
     Active Substance: EPOPROSTENOL
     Indication: PULMONARY ARTERIAL HYPERTENSION
     Dosage: 43 NG/KG, PER MIN
     Route: 042
     Dates: start: 20110221
  2. TRACLEER [Suspect]
     Active Substance: BOSENTAN
     Indication: PULMONARY ARTERIAL HYPERTENSION
     Dosage: 62.5 MG, BID
     Route: 048
     Dates: start: 20151009

REACTIONS (9)
  - Pain [Unknown]
  - Device occlusion [Recovered/Resolved]
  - Carbon dioxide increased [Unknown]
  - Hypoxia [Unknown]
  - Dyspnoea [Unknown]
  - Malaise [Unknown]
  - Back pain [Unknown]
  - Abdominal pain upper [Unknown]
  - Pneumonia [Unknown]
